FAERS Safety Report 11192070 (Version 1)
Quarter: 2015Q2

REPORT INFORMATION
  Report Type: Spontaneous
  Country: US (occurrence: None)
  Receive Date: 20150615
  Receipt Date: 20150615
  Transmission Date: 20150821
  Serious: No
  Sender: FDA-Public Use
  Company Number: None

PATIENT
  Sex: Female

DRUGS (1)
  1. ENBREL [Suspect]
     Active Substance: ETANERCEPT
     Indication: RHEUMATOID ARTHRITIS
     Route: 058
     Dates: start: 20150324, end: 20150519

REACTIONS (5)
  - Injection site pruritus [None]
  - Injection site swelling [None]
  - Injection site pain [None]
  - Injection site warmth [None]
  - Injection site induration [None]
